FAERS Safety Report 6680854-9 (Version None)
Quarter: 2010Q2

REPORT INFORMATION
  Report Type: 
  Country: None (occurrence: None)
  Receive Date: 20100412
  Receipt Date: 20100331
  Transmission Date: 20101027
  Serious: Yes (Life-Threatening)
  Sender: FDA-Public Use
  Company Number: 007473

PATIENT
  Age: 61 Year
  Sex: Female

DRUGS (3)
  1. PLETAAL     (CLIOSTAZOL) [Suspect]
     Route: 048
  2. PANALDINE (TICLOPIDINE HYDROCHLORIDE) UNKNOWN [Suspect]
     Route: 048
  3. LIPITOR [Suspect]
     Route: 048

REACTIONS (1)
  - LIVER DISORDER [None]
